FAERS Safety Report 4335278-6 (Version None)
Quarter: 2004Q2

REPORT INFORMATION
  Report Type: 
  Country: None (occurrence: None)
  Receive Date: 20040406
  Receipt Date: 20040211
  Transmission Date: 20050107
  Serious: Yes (Other)
  Sender: FDA-Public Use
  Company Number: 344230

PATIENT
  Age: 42 Year
  Sex: Male
  Weight: 103.4 kg

DRUGS (6)
  1. FUZEON [Suspect]
     Indication: HIV INFECTION
     Dosage: 90 MG  2 PER DAY  SUBCUTANEOUS
     Route: 058
     Dates: start: 20030711
  2. TENOFOVIR (TENOFOVIR) [Concomitant]
  3. KALETRA [Concomitant]
  4. NEURONTIN [Concomitant]
  5. DAPSONE [Concomitant]
  6. PNEUMONIA SHOT (ONEUMOCOCCAL) [Concomitant]

REACTIONS (9)
  - COUGH [None]
  - INJECTION SITE BURNING [None]
  - INJECTION SITE INDURATION [None]
  - INJECTION SITE MASS [None]
  - INJECTION SITE PAIN [None]
  - INJECTION SITE PRURITUS [None]
  - INJECTION SITE REACTION [None]
  - MEDICATION ERROR [None]
  - NASOPHARYNGITIS [None]
